FAERS Safety Report 16540939 (Version 6)
Quarter: 2020Q4

REPORT INFORMATION
  Report Type: Report from Study
  Country: JP (occurrence: JP)
  Receive Date: 20190708
  Receipt Date: 20201130
  Transmission Date: 20210113
  Serious: Yes (Hospitalization, Other)
  Sender: FDA-Public Use
  Company Number: JP-JNJFOC-20190701629

PATIENT
  Age: 65 Year
  Sex: Male

DRUGS (20)
  1. RILPIVIRINE [Suspect]
     Active Substance: RILPIVIRINE
     Route: 048
     Dates: start: 20150512, end: 20190120
  2. JULUCA [Concomitant]
     Active Substance: DOLUTEGRAVIR SODIUM\RILPIVIRINE HYDROCHLORIDE
     Indication: HIV INFECTION
     Route: 048
     Dates: start: 20191105
  3. TIVICAY [Concomitant]
     Active Substance: DOLUTEGRAVIR SODIUM
     Indication: HIV INFECTION
     Route: 048
     Dates: start: 20190813, end: 20191104
  4. MUCOSTA [Concomitant]
     Active Substance: REBAMIPIDE
     Indication: DYSPEPSIA
     Dosage: UNKNOWN
     Route: 065
     Dates: start: 20160215, end: 20160426
  5. GASTER [Concomitant]
     Active Substance: FAMOTIDINE
     Indication: DYSPEPSIA
     Dosage: UNKNOWN
     Route: 065
     Dates: start: 20160215, end: 20160426
  6. EPZICOM [Suspect]
     Active Substance: ABACAVIR SULFATE\LAMIVUDINE
     Indication: HIV INFECTION
     Route: 048
     Dates: start: 20150512, end: 20190120
  7. TRUVADA [Concomitant]
     Active Substance: EMTRICITABINE\TENOFOVIR DISOPROXIL FUMARATE
     Indication: HIV INFECTION
     Dosage: UNKNOWN
     Route: 048
     Dates: start: 201210, end: 20150511
  8. DESCOVY [Concomitant]
     Active Substance: EMTRICITABINE\TENOFOVIR ALAFENAMIDE FUMARATE
     Indication: HIV INFECTION
     Route: 048
     Dates: start: 20190813, end: 20191104
  9. NIZORAL [Concomitant]
     Active Substance: KETOCONAZOLE
     Indication: SEBORRHOEIC DERMATITIS
     Dosage: UNKNOWN
     Route: 061
     Dates: start: 20150807, end: 20160802
  10. RINDERON V [Concomitant]
     Active Substance: BETAMETHASONE VALERATE
     Indication: SEBORRHOEIC DERMATITIS
     Dosage: UNKNOWN
     Route: 061
     Dates: start: 20150807, end: 20151109
  11. HIRUDOID [Concomitant]
     Active Substance: GLYCOSAMINOGLYCANS
     Indication: SEBORRHOEIC DERMATITIS
     Dosage: UNKNOWN
     Route: 061
     Dates: start: 20151110
  12. AZILVA [Concomitant]
     Active Substance: AZILSARTAN KAMEDOXOMIL
     Indication: HYPERTENSION
     Route: 048
     Dates: start: 20170201, end: 20170806
  13. EXCELASE [Concomitant]
     Active Substance: PANCRELIPASE
     Indication: ABDOMINAL DISCOMFORT
     Dosage: UNKNOWN
     Route: 048
     Dates: start: 20170227, end: 20190701
  14. RINDERON V [Concomitant]
     Active Substance: BETAMETHASONE VALERATE
     Indication: SEBORRHOEIC DERMATITIS
     Dosage: UNKNOWN
     Route: 061
     Dates: start: 20151110
  15. GASMOTIN [Concomitant]
     Active Substance: MOSAPRIDE CITRATE
     Indication: DYSPEPSIA
     Dosage: UNKNOWN
     Route: 048
     Dates: start: 20160215, end: 20160426
  16. RILPIVIRINE [Suspect]
     Active Substance: RILPIVIRINE
     Indication: HIV INFECTION
     Route: 048
     Dates: end: 20150511
  17. JULUCA [Concomitant]
     Active Substance: DOLUTEGRAVIR SODIUM\RILPIVIRINE HYDROCHLORIDE
     Indication: HIV INFECTION
     Route: 048
     Dates: start: 20190121, end: 20190812
  18. GANATON [Concomitant]
     Active Substance: ITOPRIDE
     Indication: ABDOMINAL DISCOMFORT
     Dosage: UNKNOWN
     Route: 048
     Dates: start: 20170227, end: 20190701
  19. CRESTOR [Concomitant]
     Active Substance: ROSUVASTATIN CALCIUM
     Indication: HYPERLIPIDAEMIA
     Dosage: UNKNOWN
     Route: 048
     Dates: start: 20160803
  20. BLOPRESS [Concomitant]
     Active Substance: CANDESARTAN CILEXETIL
     Indication: HYPERTENSION
     Route: 048
     Dates: start: 20170807

REACTIONS (5)
  - Hypertension [Not Recovered/Not Resolved]
  - Ureterolithiasis [Recovering/Resolving]
  - Liver disorder [Recovering/Resolving]
  - Dyspepsia [Recovering/Resolving]
  - Abdominal discomfort [Recovering/Resolving]

NARRATIVE: CASE EVENT DATE: 20160215
